FAERS Safety Report 18600587 (Version 2)
Quarter: 2021Q1

REPORT INFORMATION
  Report Type: Report from Study
  Country: None (occurrence: US)
  Receive Date: 20201210
  Receipt Date: 20210105
  Transmission Date: 20210419
  Serious: Yes (Other)
  Sender: FDA-Public Use
  Company Number: US-ABBVIE-20K-163-3677883-00

PATIENT
  Sex: Female

DRUGS (4)
  1. LEXAPRO [Suspect]
     Active Substance: ESCITALOPRAM OXALATE
     Indication: PRODUCT USED FOR UNKNOWN INDICATION
     Route: 058
  2. HUMIRA [Suspect]
     Active Substance: ADALIMUMAB
     Indication: PSORIATIC ARTHROPATHY
     Route: 058
  3. HUMIRA [Suspect]
     Active Substance: ADALIMUMAB
     Indication: PSORIASIS
  4. KLONOPIN [Concomitant]
     Active Substance: CLONAZEPAM
     Indication: PRODUCT USED FOR UNKNOWN INDICATION

REACTIONS (9)
  - Hepatic cyst [Unknown]
  - Glycosylated haemoglobin abnormal [Unknown]
  - Blood glucose increased [Unknown]
  - Blood sodium decreased [Unknown]
  - Headache [Not Recovered/Not Resolved]
  - Drug level decreased [Unknown]
  - Oropharyngeal pain [Unknown]
  - Ear pain [Unknown]
  - Seizure [Unknown]
